FAERS Safety Report 19932130 (Version 2)
Quarter: 2021Q4

REPORT INFORMATION
  Report Type: Spontaneous
  Country: RU (occurrence: RU)
  Receive Date: 20211008
  Receipt Date: 20211206
  Transmission Date: 20220304
  Serious: Yes (Hospitalization, Other)
  Sender: FDA-Public Use
  Company Number: RU-NOVOPROD-853321

PATIENT
  Age: 14 Year
  Sex: Male

DRUGS (2)
  1. FIASP [Suspect]
     Active Substance: INSULIN ASPART
     Indication: Type 1 diabetes mellitus
     Dosage: 110 IU, QD
     Route: 058
     Dates: start: 202107
  2. FIASP [Suspect]
     Active Substance: INSULIN ASPART
     Dosage: 120 IU, QD
     Route: 065
     Dates: end: 20210926

REACTIONS (6)
  - Colitis [Recovered/Resolved]
  - Blood glucose increased [Recovered/Resolved]
  - Dermatitis atopic [Recovered/Resolved]
  - Eye swelling [Unknown]
  - Lip swelling [Unknown]
  - Wrong technique in product usage process [Unknown]

NARRATIVE: CASE EVENT DATE: 20210701
